FAERS Safety Report 14890118 (Version 1)
Quarter: 2018Q2

REPORT INFORMATION
  Report Type: Spontaneous
  Country: US (occurrence: US)
  Receive Date: 20180514
  Receipt Date: 20180514
  Transmission Date: 20180711
  Serious: Yes (Life-Threatening, Other)
  Sender: FDA-Public Use
  Company Number: US-STRIDES ARCOLAB LIMITED-2017SP007611

PATIENT

DRUGS (3)
  1. DAPTOMYCIN. [Concomitant]
     Active Substance: DAPTOMYCIN
     Indication: PRODUCT USED FOR UNKNOWN INDICATION
     Dosage: 6 MG/KG EVERY 48 HOURS FOR AN ADDITIONAL 4 WEEKS
     Route: 065
  2. VANCOMYCIN [Suspect]
     Active Substance: VANCOMYCIN
     Indication: STAPHYLOCOCCAL INFECTION
     Dosage: 750 MG, UNKNOWN
     Route: 065
  3. CEFTAROLINE [Concomitant]
     Active Substance: CEFTAROLINE
     Indication: PRODUCT USED FOR UNKNOWN INDICATION
     Dosage: 200 MG, EVERY 12 HRS
     Route: 065

REACTIONS (1)
  - Drug ineffective [Unknown]
